FAERS Safety Report 7624795-9 (Version None)
Quarter: 2011Q3

REPORT INFORMATION
  Report Type: 
  Country: None (occurrence: None)
  Receive Date: 20110720
  Receipt Date: 20110718
  Transmission Date: 20111222
  Serious: Yes (Death, Hospitalization)
  Sender: FDA-Public Use
  Company Number: ES-AMGEN-ESPCT2011034923

PATIENT
  Age: 60 Year
  Sex: Female

DRUGS (6)
  1. METFORMIN HCL [Concomitant]
     Dosage: 850 MG, QD
     Route: 048
  2. SUMIAL [Concomitant]
     Dosage: 80 MG, QD
     Route: 048
  3. PACLITAXEL [Concomitant]
     Dosage: 80 MG/M2, QWK
     Route: 042
     Dates: start: 20110701, end: 20110707
  4. PANITUMUMAB [Suspect]
     Indication: COLORECTAL CANCER
     Dosage: 6 MG/KG, Q2WK
     Dates: start: 20110701
  5. OMEPRAZOLE [Concomitant]
     Dosage: 20 MG, QD
     Route: 048
  6. CODEINE SULFATE [Concomitant]
     Dosage: 30 MG, QD
     Route: 048

REACTIONS (1)
  - FEBRILE NEUTROPENIA [None]
